FAERS Safety Report 15716872 (Version 2)
Quarter: 2019Q1

REPORT INFORMATION
  Report Type: Spontaneous
  Country: US (occurrence: US)
  Receive Date: 20181213
  Receipt Date: 20190115
  Transmission Date: 20190417
  Serious: No
  Sender: FDA-Public Use
  Company Number: US-BIOGEN-2018BI00670695

PATIENT
  Sex: Female

DRUGS (1)
  1. PLEGRIDY [Suspect]
     Active Substance: PEGINTERFERON BETA-1A
     Indication: MULTIPLE SCLEROSIS
     Route: 065

REACTIONS (4)
  - Product dose omission [Unknown]
  - Device malfunction [Unknown]
  - Anxiety [Unknown]
  - Device leakage [Unknown]
